FAERS Safety Report 9859784 (Version 1)
Quarter: 2014Q1

REPORT INFORMATION
  Report Type: Spontaneous
  Country: FR (occurrence: FR)
  Receive Date: 20140131
  Receipt Date: 20140131
  Transmission Date: 20141002
  Serious: Yes (Death)
  Sender: FDA-Public Use
  Company Number: FR-PFIZER INC-2014029065

PATIENT
  Age: 71 Year
  Sex: Male

DRUGS (5)
  1. LYRICA [Suspect]
     Indication: NEURALGIA
     Dosage: UNK
     Route: 048
     Dates: start: 20131112
  2. FLUDEX [Concomitant]
  3. APROVEL [Concomitant]
  4. GLICLAZIDE [Concomitant]
  5. PARACETAMOL [Concomitant]

REACTIONS (1)
  - Cardiogenic shock [Fatal]
